FAERS Safety Report 9585060 (Version 1)
Quarter: 2013Q4

REPORT INFORMATION
  Report Type: Spontaneous
  Country: US (occurrence: US)
  Receive Date: 20131002
  Receipt Date: 20131002
  Transmission Date: 20140711
  Serious: No
  Sender: FDA-Public Use
  Company Number: US-AMGEN-USASP2013061500

PATIENT
  Age: 39 Year
  Sex: Male
  Weight: 76.19 kg

DRUGS (4)
  1. ENBREL [Suspect]
     Indication: PRODUCT USED FOR UNKNOWN INDICATION
     Dosage: 50 MG, 2 TIMES/WK
     Route: 058
  2. ZOLOFT [Concomitant]
     Dosage: 25 MG, UNK
  3. MULTIVITAMINS, PLAIN [Concomitant]
     Dosage: UNK
  4. LORATADINE [Concomitant]
     Dosage: ^ALLG REL^

REACTIONS (1)
  - Nasopharyngitis [Unknown]
